FAERS Safety Report 11589158 (Version 4)
Quarter: 2019Q3

REPORT INFORMATION
  Report Type: Spontaneous
  Country: US (occurrence: US)
  Receive Date: 20151002
  Receipt Date: 20190909
  Transmission Date: 20191004
  Serious: Yes (Other)
  Sender: FDA-Public Use
  Company Number: US-PFIZER INC-2015329661

PATIENT
  Age: 60 Year
  Sex: Male
  Weight: 84 kg

DRUGS (6)
  1. LYRICA [Suspect]
     Active Substance: PREGABALIN
     Indication: NEURALGIA
     Dosage: 50 MG, 2X/DAY
     Dates: start: 20150918, end: 20150928
  2. HYDROMORPHONE [Suspect]
     Active Substance: HYDROMORPHONE
     Dosage: UNK
  3. OXYCODONE [Suspect]
     Active Substance: OXYCODONE
     Indication: PAIN
     Dosage: 20 MG, EVERY 8 HOURS AS NEEDED
     Dates: end: 20150917
  4. LYRICA [Suspect]
     Active Substance: PREGABALIN
     Indication: BURNING SENSATION
     Dosage: 75 MG, DAILY
     Dates: start: 20150928, end: 20150928
  5. HYDROCODONE/PARACETAMOL [Concomitant]
     Indication: MUSCLE SPASMS
     Dosage: [HYDROCODONE, 10MG]/ [ACETAMINOPHEN, 325MG], 1 DF, ONE TABLET EVERY 6 HOURS
  6. DIAZEPAM. [Concomitant]
     Active Substance: DIAZEPAM
     Indication: ANXIETY
     Dosage: 10 MG, 3X/DAY

REACTIONS (31)
  - Cold sweat [Not Recovered/Not Resolved]
  - Thinking abnormal [Unknown]
  - Anxiety [Not Recovered/Not Resolved]
  - Insomnia [Not Recovered/Not Resolved]
  - Thirst [Not Recovered/Not Resolved]
  - Suicidal ideation [Recovered/Resolved]
  - Diarrhoea [Not Recovered/Not Resolved]
  - Asthenia [Not Recovered/Not Resolved]
  - Nausea [Not Recovered/Not Resolved]
  - Malaise [Unknown]
  - Restlessness [Not Recovered/Not Resolved]
  - Headache [Not Recovered/Not Resolved]
  - Vision blurred [Not Recovered/Not Resolved]
  - Dry mouth [Recovering/Resolving]
  - Myalgia [Not Recovered/Not Resolved]
  - Salivary hypersecretion [Unknown]
  - Depression [Not Recovered/Not Resolved]
  - Peripheral swelling [Unknown]
  - Pain [Unknown]
  - Weight increased [Unknown]
  - Fatigue [Not Recovered/Not Resolved]
  - Decreased appetite [Unknown]
  - Panic attack [Unknown]
  - Burning sensation [Unknown]
  - Drug ineffective [Unknown]
  - Tremor [Not Recovered/Not Resolved]
  - Injury [Unknown]
  - Disturbance in attention [Unknown]
  - Hyperhidrosis [Unknown]
  - Confusional state [Not Recovered/Not Resolved]
  - Dizziness [Not Recovered/Not Resolved]

NARRATIVE: CASE EVENT DATE: 20150930
